FAERS Safety Report 10744701 (Version 1)
Quarter: 2015Q1

REPORT INFORMATION
  Report Type: Spontaneous
  Country: US (occurrence: None)
  Receive Date: 20150126
  Receipt Date: 20150126
  Transmission Date: 20150721
  Serious: No
  Sender: FDA-Public Use
  Company Number: None

PATIENT
  Age: 23 Year
  Sex: Female
  Weight: 50.8 kg

DRUGS (1)
  1. BUPROPION XL [Suspect]
     Active Substance: BUPROPION
     Indication: BIPOLAR II DISORDER
     Dosage: 3 PILLS ONCE DAILY TAKEN BY MOUTH
     Route: 048
     Dates: start: 20150101, end: 20150124

REACTIONS (8)
  - Educational problem [None]
  - Product substitution issue [None]
  - Fatigue [None]
  - Insomnia [None]
  - Product quality issue [None]
  - Depression [None]
  - Drug ineffective [None]
  - Impaired work ability [None]

NARRATIVE: CASE EVENT DATE: 20150101
